FAERS Safety Report 8303849-8 (Version None)
Quarter: 2012Q2

REPORT INFORMATION
  Report Type: 
  Country: None (occurrence: None)
  Receive Date: 20120418
  Receipt Date: 20110727
  Transmission Date: 20120825
  Serious: No
  Sender: FDA-Public Use
  Company Number: AEUSA201100204

PATIENT
  Age: 69 Year
  Sex: Female

DRUGS (20)
  1. PLAVIX [Concomitant]
  2. DIOVAN [Concomitant]
  3. CELEXA [Concomitant]
  4. FEXOFENADINE [Concomitant]
  5. VITAMIN D /00318501/ [Concomitant]
  6. MIRALAX [Concomitant]
  7. PATANOL [Concomitant]
  8. ALPRAZOLAM [Concomitant]
  9. DOCUSATE SODIUM [Concomitant]
  10. CARVEDILOL [Concomitant]
  11. ASPIRIN [Concomitant]
  12. ALBUTEROL [Concomitant]
  13. ZOLPIDEM [Concomitant]
  14. IRON [Concomitant]
  15. AZELASTINE HCL [Concomitant]
  16. LANSOPRAZOLE [Concomitant]
  17. FISH OIL [Concomitant]
  18. ADVAIR DISKUS 100/50 [Concomitant]
  19. GAMASTAN [Suspect]
     Indication: CHRONIC FATIGUE SYNDROME
     Dosage: 2 ML;BIW;IM
     Route: 030
     Dates: start: 20010101
  20. CRESTOR [Concomitant]

REACTIONS (10)
  - MALAISE [None]
  - WRONG TECHNIQUE IN DRUG USAGE PROCESS [None]
  - MEDICATION ERROR [None]
  - PRODUCT QUALITY ISSUE [None]
  - NAUSEA [None]
  - HOT FLUSH [None]
  - FATIGUE [None]
  - PYREXIA [None]
  - NO REACTION ON PREVIOUS EXPOSURE TO DRUG [None]
  - CHILLS [None]
